FAERS Safety Report 6743800-5 (Version None)
Quarter: 2010Q2

REPORT INFORMATION
  Report Type: 
  Country: None (occurrence: None)
  Receive Date: 20100527
  Receipt Date: 20100324
  Transmission Date: 20101027
  Serious: No
  Sender: FDA-Public Use
  Company Number: US-KINGPHARMUSA00001-K201000359

PATIENT
  Age: 48 Year
  Sex: Female
  Weight: 60.771 kg

DRUGS (5)
  1. FLECTOR [Suspect]
     Indication: BACK INJURY
     Dosage: 1 PATCH, EVERY 12 HOURS
     Route: 061
     Dates: start: 20100201, end: 20100201
  2. LISINOPRIL [Concomitant]
     Indication: BLOOD CHOLESTEROL INCREASED
     Dosage: UNK
     Route: 048
  3. PROTONIX [Concomitant]
     Indication: GASTROOESOPHAGEAL REFLUX DISEASE
     Dosage: UNK
     Route: 048
  4. PROTONIX [Concomitant]
     Indication: GASTRITIS
  5. SINGULAIR [Concomitant]
     Indication: SEASONAL ALLERGY
     Dosage: UNK
     Route: 048

REACTIONS (1)
  - APPLICATION SITE ERYTHEMA [None]
